FAERS Safety Report 8151035-7 (Version None)
Quarter: 2012Q1

REPORT INFORMATION
  Report Type: 
  Country: None (occurrence: None)
  Receive Date: 20120220
  Receipt Date: 20120214
  Transmission Date: 20120608
  Serious: Yes (Life-Threatening, Hospitalization)
  Sender: FDA-Public Use
  Company Number: US-MERCK-1201USA04304

PATIENT
  Age: 67 Year
  Sex: Female
  Weight: 77 kg

DRUGS (2)
  1. ZOLINZA [Suspect]
     Indication: LUNG NEOPLASM MALIGNANT
     Route: 048
     Dates: start: 20100527, end: 20100604
  2. ZOLINZA [Suspect]
     Indication: METASTASES TO CENTRAL NERVOUS SYSTEM
     Route: 048
     Dates: start: 20100527, end: 20100604

REACTIONS (11)
  - CARDIOVASCULAR DISORDER [None]
  - FLUID OVERLOAD [None]
  - HYPOTENSION [None]
  - RENAL FAILURE [None]
  - RESPIRATORY DISTRESS [None]
  - CHRONIC OBSTRUCTIVE PULMONARY DISEASE [None]
  - PULMONARY EMBOLISM [None]
  - DEHYDRATION [None]
  - EPISTAXIS [None]
  - HYPERKALAEMIA [None]
  - LEUKOCYTOSIS [None]
